FAERS Safety Report 8676907 (Version 2)
Quarter: 2014Q3

REPORT INFORMATION
  Report Type: Spontaneous
  Country: CA (occurrence: CA)
  Receive Date: 20120723
  Receipt Date: 20140728
  Transmission Date: 20150326
  Serious: Yes (Hospitalization, Other)
  Sender: FDA-Public Use
  Company Number: CA-RANBAXY-2012US-57989

PATIENT
  Age: 3 Year
  Sex: Female

DRUGS (1)
  1. PARACETAMOL/CODEINE [Suspect]
     Active Substance: ACETAMINOPHEN\CODEINE PHOSPHATE
     Indication: PRODUCT USED FOR UNKNOWN INDICATION
     Dosage: 150MG/50MG 4-6 HRS,PRN
     Route: 065

REACTIONS (3)
  - Pyrexia [Recovered/Resolved]
  - Apnoea [Recovered/Resolved]
  - Haematemesis [Recovered/Resolved]
